FAERS Safety Report 6175216-7 (Version None)
Quarter: 2009Q2

REPORT INFORMATION
  Report Type: 
  Country: None (occurrence: None)
  Receive Date: 20090430
  Receipt Date: 20090127
  Transmission Date: 20091009
  Serious: No
  Sender: FDA-Public Use
  Company Number: US-ASTRAZENECA-2009UW02378

PATIENT
  Sex: Female
  Weight: 65.3 kg

DRUGS (9)
  1. NEXIUM [Suspect]
     Indication: GASTROOESOPHAGEAL REFLUX DISEASE
     Route: 048
     Dates: start: 20040101
  2. CRESTOR [Suspect]
     Indication: BLOOD CHOLESTEROL INCREASED
     Route: 048
     Dates: start: 20080101
  3. NIASPAN [Concomitant]
  4. METOPROLOL SUCCINATE [Concomitant]
  5. TRICOR [Concomitant]
  6. WARFARIN [Concomitant]
  7. SYNTHROID [Concomitant]
  8. LOVAZA [Concomitant]
  9. CQ10 [Concomitant]

REACTIONS (2)
  - MUSCLE SPASMS [None]
  - RHINORRHOEA [None]
